FAERS Safety Report 10013509 (Version 5)
Quarter: 2014Q3

REPORT INFORMATION
  Report Type: Spontaneous
  Country: IE (occurrence: IE)
  Receive Date: 20140314
  Receipt Date: 20140715
  Transmission Date: 20150326
  Serious: Yes (Hospitalization)
  Sender: FDA-Public Use
  Company Number: US-ASTRAZENECA-2014SE17194

PATIENT
  Age: 7 Month
  Sex: Male
  Weight: 6.6 kg

DRUGS (8)
  1. RANITIDINE [Concomitant]
     Active Substance: RANITIDINE\RANITIDINE HYDROCHLORIDE
     Indication: GASTROOESOPHAGEAL REFLUX DISEASE
     Route: 050
     Dates: start: 20140508
  2. LACTULOSE. [Concomitant]
     Active Substance: LACTULOSE
     Indication: CONSTIPATION
     Route: 050
     Dates: start: 20140508
  3. ERYTHROMYCIN. [Concomitant]
     Active Substance: ERYTHROMYCIN
     Indication: PROPHYLAXIS
     Route: 050
     Dates: start: 20140508
  4. ERYTHROPED [Concomitant]
     Indication: PRODUCT USED FOR UNKNOWN INDICATION
  5. SYNAGIS [Suspect]
     Active Substance: PALIVIZUMAB
     Indication: MUCOLIPIDOSIS TYPE II
     Route: 030
     Dates: start: 20131129, end: 20131129
  6. SYNAGIS [Suspect]
     Active Substance: PALIVIZUMAB
     Indication: MUCOLIPIDOSIS TYPE II
     Route: 030
     Dates: start: 20140304, end: 20140304
  7. VITAMIN D [Concomitant]
     Active Substance: CHOLECALCIFEROL
     Indication: PRODUCT USED FOR UNKNOWN INDICATION
  8. ZANTAC [Concomitant]
     Active Substance: RANITIDINE HYDROCHLORIDE
     Indication: PRODUCT USED FOR UNKNOWN INDICATION

REACTIONS (8)
  - Lower respiratory tract infection [Unknown]
  - Respiratory tract congestion [Recovered/Resolved]
  - Condition aggravated [Unknown]
  - Aspiration [Unknown]
  - Off label use [Recovered/Resolved]
  - Restrictive pulmonary disease [Unknown]
  - Bronchiolitis [Recovered/Resolved]
  - Cough [Unknown]

NARRATIVE: CASE EVENT DATE: 201402
